FAERS Safety Report 7047830-8 (Version None)
Quarter: 2010Q4

REPORT INFORMATION
  Report Type: 
  Country: None (occurrence: None)
  Receive Date: 20101015
  Receipt Date: 20101004
  Transmission Date: 20110411
  Serious: No
  Sender: FDA-Public Use
  Company Number: US-PFIZER INC-2010125693

PATIENT
  Sex: Female
  Weight: 57.596 kg

DRUGS (4)
  1. CHANTIX [Suspect]
     Indication: SMOKING CESSATION THERAPY
     Dosage: 0.5 MG, 1X/DAY
     Dates: start: 20080701
  2. CHANTIX [Suspect]
     Dosage: 1 MG, 2X/DAY
     Route: 048
     Dates: end: 20080918
  3. LEXAPRO [Concomitant]
     Dosage: UNK
  4. BUPRENORPHINE HCL AND NALOXONE HCL [Concomitant]
     Dosage: UNK

REACTIONS (2)
  - MULTIPLE DRUG OVERDOSE [None]
  - SOMNAMBULISM [None]
